FAERS Safety Report 9946463 (Version 2)
Quarter: 2015Q1

REPORT INFORMATION
  Report Type: Report from Study
  Country: US (occurrence: US)
  Receive Date: 20140303
  Receipt Date: 20150216
  Transmission Date: 20150721
  Serious: No
  Sender: FDA-Public Use
  Company Number: US-ABBVIE-13P-163-1063158-00

PATIENT
  Age: 50 Year
  Sex: Female
  Weight: 107 kg

DRUGS (17)
  1. LOSARTAN [Concomitant]
     Active Substance: LOSARTAN
     Indication: HYPERTENSION
  2. FLONASE [Concomitant]
     Active Substance: FLUTICASONE PROPIONATE
     Indication: SEASONAL ALLERGY
     Dosage: X 2 SPRAY BILATERAL NASAL
  3. HUMIRA [Suspect]
     Active Substance: ADALIMUMAB
     Indication: PSORIASIS
     Route: 058
     Dates: start: 201301, end: 20130216
  4. CYMBALTA [Concomitant]
     Active Substance: DULOXETINE HYDROCHLORIDE
     Indication: DEPRESSION
  5. ULTRAM [Concomitant]
     Active Substance: TRAMADOL HYDROCHLORIDE
     Indication: ARTHRALGIA
     Dosage: (X1) Q 8 HOURS PRN
  6. CARISOPRODOL. [Concomitant]
     Active Substance: CARISOPRODOL
     Indication: INSOMNIA
  7. LEVOTHYROXINE [Concomitant]
     Active Substance: LEVOTHYROXINE
     Indication: HYPOTHYROIDISM
  8. VITAMIN D [Concomitant]
     Active Substance: CHOLECALCIFEROL
     Indication: VITAMIN D DECREASED
  9. ESTRADIOL. [Concomitant]
     Active Substance: ESTRADIOL
     Indication: HORMONE REPLACEMENT THERAPY
     Dosage: GEL 2 PUMPS
     Route: 062
  10. XANAX [Concomitant]
     Active Substance: ALPRAZOLAM
     Indication: ANXIETY
     Dosage: (X1) TID/PRN
  11. AMLODIPINE [Concomitant]
     Active Substance: AMLODIPINE BESYLATE
     Indication: HYPERTENSION
  12. OMEPRAZOLE. [Concomitant]
     Active Substance: OMEPRAZOLE
     Indication: PROPHYLAXIS
  13. MELOXICAM. [Concomitant]
     Active Substance: MELOXICAM
     Indication: ARTHRALGIA
     Dosage: DAILY PNR
  14. CYMBALTA [Concomitant]
     Active Substance: DULOXETINE HYDROCHLORIDE
     Indication: FIBROMYALGIA
  15. ZYRTEC [Concomitant]
     Active Substance: CETIRIZINE HYDROCHLORIDE
     Indication: SEASONAL ALLERGY
  16. VERTICAL TOPICAL OINTMENT [Concomitant]
     Indication: PSORIASIS
     Dosage: 3 MCG/ 1 GM
     Route: 061
  17. METOPROLOL [Concomitant]
     Active Substance: METOPROLOL
     Indication: HYPERTENSION

REACTIONS (3)
  - Hypoaesthesia [Unknown]
  - Gait disturbance [Unknown]
  - Pain [Unknown]

NARRATIVE: CASE EVENT DATE: 20121119
